FAERS Safety Report 14605552 (Version 2)
Quarter: 2018Q3

REPORT INFORMATION
  Report Type: Other
  Country: US (occurrence: US)
  Receive Date: 20180306
  Receipt Date: 20180831
  Transmission Date: 20181010
  Serious: No
  Sender: FDA-Public Use
  Company Number: US-INTERCEPT-PMOCA2017001743

PATIENT

DRUGS (1)
  1. OCALIVA [Suspect]
     Active Substance: OBETICHOLIC ACID
     Indication: PRIMARY BILIARY CHOLANGITIS
     Dosage: 5 MG, QD
     Route: 048
     Dates: start: 20171114, end: 20180504

REACTIONS (21)
  - Irritable bowel syndrome [Unknown]
  - Mouth swelling [Unknown]
  - Tremor [Unknown]
  - Haematochezia [Unknown]
  - Mood swings [Unknown]
  - Night sweats [Unknown]
  - Pollakiuria [Unknown]
  - Weight decreased [Unknown]
  - Pruritus [Unknown]
  - Rash [Unknown]
  - Rectal prolapse [Unknown]
  - Anxiety [Unknown]
  - Dysphonia [Unknown]
  - Confusional state [Unknown]
  - Constipation [Unknown]
  - Abdominal distension [Unknown]
  - Pyrexia [Unknown]
  - Eczema [Unknown]
  - Memory impairment [Unknown]
  - Back pain [Unknown]
  - Heart rate irregular [Unknown]

NARRATIVE: CASE EVENT DATE: 2017
